FAERS Safety Report 18374793 (Version 1)
Quarter: 2020Q4

REPORT INFORMATION
  Report Type: Spontaneous
  Country: US (occurrence: US)
  Receive Date: 20201012
  Receipt Date: 20201012
  Transmission Date: 20210114
  Serious: Yes (Death, Other)
  Sender: FDA-Public Use
  Company Number: US-PURDUE-USA-2020-0169268

PATIENT
  Age: 64 Year
  Sex: Male

DRUGS (2)
  1. ALCOHOL. [Suspect]
     Active Substance: ALCOHOL
     Indication: PRODUCT USED FOR UNKNOWN INDICATION
     Dosage: UNK
     Route: 065
  2. OXYCONTIN [Suspect]
     Active Substance: OXYCODONE HYDROCHLORIDE
     Indication: PRODUCT USED FOR UNKNOWN INDICATION
     Dosage: UNK
     Route: 048

REACTIONS (8)
  - Thrombosis [Fatal]
  - Mental disorder [Unknown]
  - Glassy eyes [Unknown]
  - Aggression [Unknown]
  - Syncope [Unknown]
  - General physical condition abnormal [Unknown]
  - Drug dependence [Unknown]
  - Alcohol use [Unknown]

NARRATIVE: CASE EVENT DATE: 20180602
